FAERS Safety Report 8269728-X (Version None)
Quarter: 2012Q2

REPORT INFORMATION
  Report Type: 
  Country: None (occurrence: None)
  Receive Date: 20120406
  Receipt Date: 20120404
  Transmission Date: 20120825
  Serious: Yes (Hospitalization, Other)
  Sender: FDA-Public Use
  Company Number: ADR-2011-10393

PATIENT
  Age: 17 Year
  Sex: Female

DRUGS (1)
  1. LIORESAL [Suspect]
     Indication: MUSCLE SPASTICITY
     Dosage: MCG, DAILY, INTRATH
     Route: 037

REACTIONS (11)
  - MUSCLE SPASTICITY [None]
  - HYPERTONIA [None]
  - CLONUS [None]
  - IMPLANT SITE HAEMATOMA [None]
  - IMPLANT SITE INFECTION [None]
  - WOUND DEHISCENCE [None]
  - DRUG WITHDRAWAL SYNDROME [None]
  - PANCREATITIS [None]
  - DEVICE CONNECTION ISSUE [None]
  - IMPLANT SITE PAIN [None]
  - IMPLANT SITE EFFUSION [None]
